FAERS Safety Report 26097109 (Version 2)
Quarter: 2025Q4

REPORT INFORMATION
  Report Type: Report from Study
  Country: US (occurrence: US)
  Receive Date: 20251127
  Receipt Date: 20251201
  Transmission Date: 20260119
  Serious: Yes (Other)
  Sender: ABBVIE
  Company Number: US-ABBVIE-6563864

PATIENT
  Age: 73 Year
  Sex: Female

DRUGS (1)
  1. HUMIRA [Suspect]
     Active Substance: ADALIMUMAB
     Indication: Rheumatoid arthritis
     Dosage: 40MG/0.4ML?FORM STRENGTH: 40 MILLIGRAM?DOSE FORM- SOLUTION FOR INJECTION IN PRE-FILLED PEN
     Route: 058

REACTIONS (5)
  - Compression fracture [Not Recovered/Not Resolved]
  - Pneumonia [Unknown]
  - Fall [Not Recovered/Not Resolved]
  - Device use error [Unknown]
  - Stress fracture [Not Recovered/Not Resolved]

NARRATIVE: CASE EVENT DATE: 20251101
